FAERS Safety Report 8339015-X (Version None)
Quarter: 2012Q2

REPORT INFORMATION
  Report Type: 
  Country: None (occurrence: None)
  Receive Date: 20120507
  Receipt Date: 20120425
  Transmission Date: 20120825
  Serious: Yes (Hospitalization, Other)
  Sender: FDA-Public Use
  Company Number: IT-PAR PHARMACEUTICAL, INC-2012SCPR004346

PATIENT

DRUGS (6)
  1. VALPROIC ACID [Concomitant]
     Indication: CONVULSION PROPHYLAXIS
     Dosage: 500 MG, BID
     Route: 065
  2. CLONAZEPAM [Suspect]
     Indication: DRUG DETOXIFICATION
     Dosage: UNK, UNKNOWN
     Route: 065
  3. CLONAZEPAM [Suspect]
     Dosage: 1 MG, TID
     Route: 065
  4. LORAZEPAM [Suspect]
     Indication: PRODUCT USED FOR UNKNOWN INDICATION
     Dosage: 2 MG, QD
     Route: 065
  5. FLUMAZENIL [Concomitant]
     Indication: DRUG DETOXIFICATION
     Dosage: 0.5 MG, / DAY; 14 HOURS DAILY
  6. LORMETAZEPAM [Suspect]
     Indication: PRODUCT USED FOR UNKNOWN INDICATION
     Dosage: 50 MG, QD
     Route: 065

REACTIONS (1)
  - PARTIAL SEIZURES [None]
